FAERS Safety Report 4344964-3 (Version None)
Quarter: 2004Q2

REPORT INFORMATION
  Report Type: 
  Country: None (occurrence: None)
  Receive Date: 20040421
  Receipt Date: 20040421
  Transmission Date: 20050107
  Serious: Yes (Death)
  Sender: FDA-Public Use
  Company Number: None

PATIENT
  Age: 59 Year
  Sex: Female

DRUGS (2)
  1. CYTARABINE [Suspect]
     Indication: ACUTE MYELOID LEUKAEMIA
     Dosage: IV CONT. INFUSION
     Route: 042
     Dates: start: 20030211, end: 20030217
  2. DAUNOMYCIN [Suspect]
     Dosage: IV CONT INFUSION
     Route: 042
     Dates: start: 20030211, end: 20030213

REACTIONS (1)
  - DEATH [None]
